FAERS Safety Report 12282744 (Version 6)
Quarter: 2017Q2

REPORT INFORMATION
  Report Type: Report from Study
  Country: US (occurrence: US)
  Receive Date: 20160419
  Receipt Date: 20170629
  Transmission Date: 20170830
  Serious: Yes (Hospitalization, Other)
  Sender: FDA-Public Use
  Company Number: US-JNJFOC-20160417283

PATIENT
  Age: 85 Year
  Sex: Male

DRUGS (14)
  1. KAPSOVIT [Concomitant]
     Indication: MACULAR DEGENERATION
  2. PRIVIGEN [Concomitant]
     Active Substance: HUMAN IMMUNOGLOBULIN G
     Dosage: 20 TO 30 GRAMS, EVERY 4-6 WEEKS, PRN
     Route: 042
  3. VITAMIN-A [Concomitant]
     Active Substance: VITAMIN A
     Dosage: 8000 UNIT, QD
     Route: 048
  4. LUTEIN-ZEAXANTHIN [Concomitant]
     Dosage: 1 UNIT (25-5 MG), QD
     Route: 048
  5. VALTREX [Concomitant]
     Active Substance: VALACYCLOVIR HYDROCHLORIDE
     Route: 048
  6. IMBRUVICA [Suspect]
     Active Substance: IBRUTINIB
     Indication: CHRONIC LYMPHOCYTIC LEUKAEMIA
     Route: 048
     Dates: start: 20151109, end: 20160319
  7. MULTIVITAMIN AND MINERAL [Concomitant]
     Dosage: 1 DF, UNK
     Route: 048
  8. FISH OIL [Concomitant]
     Active Substance: FISH OIL
     Dosage: 1 UNIT (FISH OIL-OMEGA 3 FATTY ACIDS 1000-340 MG), QD
     Route: 048
  9. MILK OF MAGNESIA [Concomitant]
     Active Substance: MAGNESIUM HYDROXIDE
     Dosage: 400 MG/5ML, PRN
     Route: 048
  10. TOCOPHEROL [Concomitant]
     Active Substance: TOCOPHEROL
     Dosage: 4000 UNIT, QD
     Route: 048
  11. BENADRYL [Concomitant]
     Active Substance: DIPHENHYDRAMINE HYDROCHLORIDE
     Indication: INSOMNIA
     Route: 048
  12. IMBRUVICA [Suspect]
     Active Substance: IBRUTINIB
     Indication: CHRONIC LYMPHOCYTIC LEUKAEMIA
     Route: 048
     Dates: start: 201603
  13. VITAMIN D3 [Concomitant]
     Active Substance: CHOLECALCIFEROL
     Route: 048
  14. FLORANEX [Concomitant]
     Active Substance: LACTOBACILLUS ACIDOPHILUS\LACTOBACILLUS DELBRUECKII SUBSP. BULGARICUS
     Dosage: 4 UNIT, TID WITH MEALS
     Route: 048

REACTIONS (16)
  - Hemiparesis [Recovered/Resolved]
  - Intracranial aneurysm [Unknown]
  - Hyperglycaemia [Unknown]
  - Splenomegaly [Unknown]
  - Pneumonia pneumococcal [Recovered/Resolved]
  - Hospitalisation [Unknown]
  - Atrial fibrillation [Unknown]
  - Immunoglobulins decreased [Unknown]
  - Hypoxia [Unknown]
  - Thrombocytopenia [Unknown]
  - Acute respiratory failure [Unknown]
  - Acute kidney injury [Unknown]
  - Diarrhoea [Recovered/Resolved]
  - Nocardiosis [Unknown]
  - Brain abscess [Not Recovered/Not Resolved]
  - Pyrexia [Recovered/Resolved]

NARRATIVE: CASE EVENT DATE: 2016
